FAERS Safety Report 9678313 (Version 5)
Quarter: 2013Q4

REPORT INFORMATION
  Report Type: Spontaneous
  Country: JP (occurrence: JP)
  Receive Date: 20131108
  Receipt Date: 20131212
  Transmission Date: 20140711
  Serious: Yes (Death, Life-Threatening, Disabling, Other)
  Sender: FDA-Public Use
  Company Number: JP-PFIZER INC-2013221656

PATIENT
  Age: 61 Year
  Sex: Male
  Weight: 66.2 kg

DRUGS (19)
  1. SUTENT [Suspect]
     Indication: RENAL CELL CARCINOMA
     Dosage: 25 MG (12 MG X 2 CAPSULES), 1X/DAY AFTER BREAKFAST
     Route: 048
     Dates: start: 20130312, end: 20130324
  2. CALTAN [Suspect]
     Indication: RENAL FAILURE CHRONIC
     Dosage: 500 TO 1000 MG, 3X/DAY
     Route: 048
  3. CALTAN [Suspect]
     Dosage: 6 TABLETS PER DAYS
     Route: 048
  4. CALTAN [Suspect]
     Dosage: 100 MG, 3X/DAY
  5. FOSRENOL [Suspect]
     Indication: RENAL FAILURE CHRONIC
     Dosage: 250 MG, 3X/DAY
     Route: 048
  6. WARFARIN [Concomitant]
     Dosage: 1 MG, 1X/DAY
     Route: 048
     Dates: start: 20130312
  7. ARTIST [Concomitant]
     Indication: MITRAL VALVE INCOMPETENCE
     Dosage: 2.5 MG, 1X/DAY
     Route: 048
  8. PARIET [Concomitant]
     Indication: HAEMORRHAGE PROPHYLAXIS
     Dosage: 10 MG, 1X/DAY
     Route: 048
  9. PRORENAL [Concomitant]
     Dosage: 5 UG, 3X/DAY
     Route: 048
     Dates: start: 20130312
  10. FRANDOL [Concomitant]
     Indication: MYOCARDIAL INFARCTION
     Dosage: 20 MG, 3X/DAY
     Route: 048
  11. ALFAROL [Concomitant]
     Indication: HYPOCALCAEMIA
     Dosage: 0.5 UG, 1X/DAY
     Route: 048
  12. RANMARK [Concomitant]
     Indication: METASTASES TO BONE
     Dosage: 120 MG, 1X/4 WEEKS
     Route: 058
     Dates: start: 20130312, end: 20130510
  13. DAI-KENCHU-TO [Concomitant]
     Indication: CONSTIPATION
     Dosage: 5 G, 3X/DAY
     Route: 048
     Dates: start: 20130329
  14. LAXOBERON [Concomitant]
     Indication: CONSTIPATION
     Dosage: A FEW DROPS, 1X/DAY
     Route: 048
     Dates: start: 20130313
  15. OXYCONTIN [Concomitant]
     Indication: PAIN
     Dosage: 10 MG, 2X/DAY
     Route: 048
     Dates: start: 20130313, end: 20130405
  16. OXINORM [Concomitant]
     Indication: PAIN
     Dosage: 2.5 MG, IRREGULARLY
     Route: 048
     Dates: start: 20130313
  17. WASSER V GRAN. [Concomitant]
     Dosage: UNK, AFTER HEMODIALYSIS
  18. LOXONIN [Concomitant]
     Dosage: 60 MG, 2X/DAY
     Route: 048
  19. MOHRUS [Concomitant]
     Dosage: 20 MG, UNK
     Route: 003

REACTIONS (4)
  - Disease progression [Fatal]
  - Renal cell carcinoma [Fatal]
  - Abdominal abscess [Recovered/Resolved with Sequelae]
  - Diverticulitis [Recovered/Resolved with Sequelae]
